FAERS Safety Report 14185930 (Version 2)
Quarter: 2017Q4

REPORT INFORMATION
  Report Type: Report from Study
  Country: IT (occurrence: IT)
  Receive Date: 20171114
  Receipt Date: 20171123
  Transmission Date: 20180321
  Serious: Yes (Other)
  Sender: FDA-Public Use
  Company Number: IT-ROCHE-2023918

PATIENT
  Age: 66 Year
  Sex: Male
  Weight: 75 kg

DRUGS (1)
  1. OCRELIZUMAB. [Suspect]
     Active Substance: OCRELIZUMAB
     Indication: PRIMARY PROGRESSIVE MULTIPLE SCLEROSIS
     Dosage: 300MG TWO TIMES A DAY THEN 600MG.?ON 10/NOV/2017, THERAPY WITH OCRELIZUMAB WAS INTERRUPTED.
     Route: 042
     Dates: start: 20171110

REACTIONS (2)
  - Chest pain [Recovered/Resolved]
  - Hypotension [Recovered/Resolved]

NARRATIVE: CASE EVENT DATE: 20171110
